FAERS Safety Report 17145500 (Version 2)
Quarter: 2020Q1

REPORT INFORMATION
  Report Type: Spontaneous
  Country: DE (occurrence: DE)
  Receive Date: 20191212
  Receipt Date: 20200323
  Transmission Date: 20200409
  Serious: Yes (Other)
  Sender: FDA-Public Use
  Company Number: DE-ASTRAZENECA-2019SF80205

PATIENT
  Age: 12 Month
  Sex: Female
  Weight: 6.5 kg

DRUGS (4)
  1. TOPIRAMAT [Concomitant]
     Active Substance: TOPIRAMATE
     Indication: EPILEPSY
     Route: 048
  2. LUMINALETTEN [Concomitant]
     Active Substance: PHENOBARBITAL
     Indication: PRODUCT USED FOR UNKNOWN INDICATION
  3. SYNAGIS [Suspect]
     Active Substance: PALIVIZUMAB
     Indication: CARDIAC DISORDER
     Route: 030
     Dates: start: 20181026, end: 20190319
  4. OMEPRAZOL [Concomitant]
     Active Substance: OMEPRAZOLE
     Indication: PRODUCT USED FOR UNKNOWN INDICATION
     Dosage: 240 MILLIGRAMS OMEPRAZOL, 6.43 GRAM SYRSPEND SF ALKA, 120.0 MILLILITER PURIFIED WATER
     Route: 048

REACTIONS (2)
  - Hepatic neoplasm [Unknown]
  - Hepatoblastoma [Recovered/Resolved]

NARRATIVE: CASE EVENT DATE: 201904
